FAERS Safety Report 13775536 (Version 1)
Quarter: 2017Q3

REPORT INFORMATION
  Report Type: Spontaneous
  Country: FR (occurrence: FR)
  Receive Date: 20170720
  Receipt Date: 20170720
  Transmission Date: 20171127
  Serious: Yes (Other)
  Sender: FDA-Public Use
  Company Number: FR-ELI_LILLY_AND_COMPANY-FR201707007213

PATIENT
  Age: 70 Year
  Sex: Male

DRUGS (6)
  1. HEPARINE SODIUM PANPHARMA [Suspect]
     Active Substance: HEPARIN SODIUM
     Indication: MYOCARDIAL INFARCTION
     Dosage: 15000 IU, BID
     Route: 042
     Dates: start: 20170507, end: 20170509
  2. ASPERGIC [Suspect]
     Active Substance: ASPIRIN LYSINE
     Indication: MYOCARDIAL INFARCTION
     Dosage: 125 MG, DAILY
     Route: 042
     Dates: start: 20170507, end: 20170507
  3. BRILIQUE [Concomitant]
     Active Substance: TICAGRELOR
     Indication: MYOCARDIAL INFARCTION
     Dosage: 90 MG, BID
     Route: 048
     Dates: start: 20170509
  4. KARDEGIC [Suspect]
     Active Substance: ASPIRIN LYSINE
     Indication: MYOCARDIAL INFARCTION
     Dosage: 75 MG, DAILY
     Route: 048
     Dates: start: 20170508
  5. PRASUGREL HYDROCHLORIDE [Suspect]
     Active Substance: PRASUGREL HYDROCHLORIDE
     Indication: MYOCARDIAL INFARCTION
     Dosage: 60 MG, DAILY
     Route: 048
     Dates: start: 20170508, end: 20170508
  6. ANGIOX [Suspect]
     Active Substance: BIVALIRUDIN
     Indication: MYOCARDIAL INFARCTION
     Dosage: 250 MG, DAILY
     Route: 042
     Dates: start: 20170507, end: 20170507

REACTIONS (9)
  - Arrhythmia [Unknown]
  - Haemoptysis [Recovered/Resolved]
  - Platelet count decreased [Unknown]
  - Haemoglobin decreased [Unknown]
  - Prothrombin time shortened [Recovered/Resolved]
  - Epistaxis [Recovered/Resolved]
  - Off label use [Unknown]
  - Haemothorax [Recovered/Resolved]
  - Blood creatinine increased [Unknown]

NARRATIVE: CASE EVENT DATE: 20170507
